APPROVED DRUG PRODUCT: INFUGEM
Active Ingredient: GEMCITABINE HYDROCHLORIDE
Strength: EQ 1800MG BASE/180ML (EQ 10MG BASE/ML)
Dosage Form/Route: SOLUTION;INTRAVENOUS
Application: N208313 | Product #007
Applicant: SUN PHARMACEUTICAL INDUSTRIES LTD
Approved: Jul 16, 2018 | RLD: Yes | RS: No | Type: DISCN

PATENTS:
Patent 9241948 | Expires: Jul 1, 2033